FAERS Safety Report 9190134 (Version 1)
Quarter: 2013Q1

REPORT INFORMATION
  Report Type: Spontaneous
  Country: US (occurrence: None)
  Receive Date: 20120703
  Receipt Date: 20120703
  Transmission Date: 20140127
  Serious: No
  Sender: FDA-Public Use
  Company Number: PHEH2012US006037

PATIENT
  Age: 43 Year
  Sex: Female
  Weight: 68 kg

DRUGS (8)
  1. GILENYA (FTY)CAPSULE [Suspect]
     Route: 048
  2. PRISTIQ (DESVENLAFAXINE SUCCINATE) TABLET [Concomitant]
  3. BUSPIRONE  (BUSPIRONE) TABLET [Concomitant]
  4. DHT (DIHYDROTACHYSTEROL)TABLET [Concomitant]
  5. CENTRUM (MINERALS NOS, VITAMINS NOS) TABLET [Concomitant]
  6. SILVER (SILVER) [Concomitant]
  7. NUVIGIL (ARMODAFINIL) TABLET [Concomitant]
  8. KENALOG IN ORABASE (TRIAMCINOLENE ACETONIDE) PASTE, 0.1% [Concomitant]

REACTIONS (2)
  - Liver disorder [None]
  - White blood cell count decreased [None]
